FAERS Safety Report 18414986 (Version 1)
Quarter: 2020Q4

REPORT INFORMATION
  Report Type: Spontaneous
  Country: GB (occurrence: GB)
  Receive Date: 20201022
  Receipt Date: 20201022
  Transmission Date: 20210114
  Serious: Yes (Other)
  Sender: FDA-Public Use
  Company Number: GB-TEVA-2020-GB-1841981

PATIENT
  Age: 24 Year
  Sex: Female

DRUGS (8)
  1. ETANERCEPT [Suspect]
     Active Substance: ETANERCEPT
     Indication: DERMATOMYOSITIS
     Route: 065
     Dates: start: 201307
  2. HYDROXYCHLOROQUINE [Suspect]
     Active Substance: HYDROXYCHLOROQUINE
     Indication: DERMATOMYOSITIS
     Dosage: 400 MILLIGRAM DAILY; INITIALLY WITH PREDNISOLONE; THEN CONTINUED FOR ABOUT 4.5 YEARS
     Route: 065
     Dates: start: 200906, end: 2013
  3. INFLIXIMAB [Suspect]
     Active Substance: INFLIXIMAB
     Indication: DERMATOMYOSITIS
     Dosage: SEVERE ALLERGIC INFUSION REACTION DEVELOPED AFTER 2ND DOSE
     Route: 041
     Dates: start: 201301
  4. ADALIMUMAB [Suspect]
     Active Substance: ADALIMUMAB
     Indication: DERMATOMYOSITIS
     Route: 058
     Dates: start: 201303
  5. ETANERCEPT [Suspect]
     Active Substance: ETANERCEPT
     Indication: CALCINOSIS
  6. HYDROCORTISONE. [Suspect]
     Active Substance: HYDROCORTISONE
     Indication: DERMATOMYOSITIS
     Route: 042
     Dates: start: 201209
  7. PREDNISOLONE. [Suspect]
     Active Substance: PREDNISOLONE
     Indication: DERMATOMYOSITIS
     Dosage: 5 MILLIGRAM DAILY; DURING PREGNANCY AFTER CICLOSPORIN WAS STOPPED
     Route: 048
     Dates: start: 2012
  8. ADALIMUMAB [Suspect]
     Active Substance: ADALIMUMAB
     Indication: CALCINOSIS

REACTIONS (5)
  - Infusion related hypersensitivity reaction [Unknown]
  - Maternal exposure during pregnancy [Unknown]
  - Injection site pain [Unknown]
  - Live birth [Unknown]
  - Drug ineffective [Unknown]

NARRATIVE: CASE EVENT DATE: 201209
